FAERS Safety Report 12561802 (Version 1)
Quarter: 2016Q3

REPORT INFORMATION
  Report Type: Spontaneous
  Country: US (occurrence: US)
  Receive Date: 20160715
  Receipt Date: 20160715
  Transmission Date: 20161109
  Serious: Yes (Hospitalization, Other)
  Sender: FDA-Public Use
  Company Number: US-FRI-1000085732

PATIENT
  Age: 70 Year
  Sex: Female

DRUGS (41)
  1. ODANSETRON [Concomitant]
     Active Substance: ONDANSETRON
     Indication: VOMITING
     Dosage: 120 MG
  2. KLONOPIN [Concomitant]
     Active Substance: CLONAZEPAM
     Indication: PAIN
  3. CLOTRIMAZOLE. [Concomitant]
     Active Substance: CLOTRIMAZOLE
     Indication: CANDIDA INFECTION
     Dosage: UNK
  4. TUDORZA PRESSAIR [Suspect]
     Active Substance: ACLIDINIUM BROMIDE
     Indication: LUNG DISORDER
     Dosage: 400 MCG, ONE PUFF TWICE DAILY
     Route: 055
     Dates: start: 20151020
  5. ASPIRIN. [Concomitant]
     Active Substance: ASPIRIN
     Indication: ILL-DEFINED DISORDER
     Dosage: 81 MG
  6. VITAMIN D [Concomitant]
     Active Substance: CHOLECALCIFEROL
     Indication: OSTEOPOROSIS
     Dosage: 2000
  7. STEROID [Concomitant]
     Active Substance: UNSPECIFIED INGREDIENT
     Dosage: UNK
  8. RELISTOR [Concomitant]
     Active Substance: METHYLNALTREXONE BROMIDE
     Dosage: UNK
  9. KLONOPIN [Concomitant]
     Active Substance: CLONAZEPAM
     Indication: NERVOUS SYSTEM DISORDER
  10. LUVOX [Concomitant]
     Active Substance: FLUVOXAMINE MALEATE
     Indication: NEURALGIA
     Dosage: 200 MG
  11. REFRESH PLUS [Concomitant]
     Active Substance: CARBOXYMETHYLCELLULOSE SODIUM
     Indication: LACRIMATION INCREASED
     Dosage: FOUR TIMES A DAY
  12. CHLORTALIDONE [Concomitant]
     Active Substance: CHLORTHALIDONE
     Indication: BLOOD PRESSURE ABNORMAL
  13. SENNA [Concomitant]
     Active Substance: SENNA LEAF\SENNOSIDES\SENNOSIDES A AND B
     Dosage: UNK
  14. LOSARTAN. [Concomitant]
     Active Substance: LOSARTAN
     Indication: HYPERTENSION
     Dosage: 100 MG
  15. ZINC [Concomitant]
     Active Substance: ZINC\ZINC CHLORIDE
     Indication: GLOSSITIS
     Dosage: 550 MG
  16. MULTIVITAMIN [Concomitant]
     Active Substance: VITAMINS
     Dosage: UNK
  17. TUDORZA PRESSAIR [Suspect]
     Active Substance: ACLIDINIUM BROMIDE
     Indication: OBSTRUCTIVE AIRWAYS DISORDER
     Dosage: 400 MCG, ONE PUFF TWICE DAILY
     Route: 055
     Dates: start: 20151020
  18. MOVANTIK [Suspect]
     Active Substance: NALOXEGOL OXALATE
     Indication: CONSTIPATION
     Dosage: 25 MG
     Route: 048
  19. ALBUTEROL. [Suspect]
     Active Substance: ALBUTEROL
     Dosage: UNK
     Route: 065
  20. SIMVASTATIN. [Concomitant]
     Active Substance: SIMVASTATIN
     Indication: BLOOD CHOLESTEROL INCREASED
     Dosage: DAILY
  21. FENTANYL. [Concomitant]
     Active Substance: FENTANYL
     Indication: PAIN
     Dosage: 25 MCG
  22. TIGAN [Concomitant]
     Active Substance: TRIMETHOBENZAMIDE HYDROCHLORIDE
     Indication: NAUSEA
     Dosage: 900 MG
  23. KLONOPIN [Concomitant]
     Active Substance: CLONAZEPAM
     Indication: FEELING OF RELAXATION
     Dosage: 1.5 MG
  24. ALIGN [Concomitant]
     Active Substance: BIFIDOBACTERIUM LONGUM SUBSP. INFANTIS
     Indication: PROBIOTIC THERAPY
     Dosage: DAILY
  25. CHLORTALIDONE [Concomitant]
     Active Substance: CHLORTHALIDONE
     Indication: DIURETIC THERAPY
     Dosage: UNK
  26. TUDORZA PRESSAIR [Suspect]
     Active Substance: ACLIDINIUM BROMIDE
     Indication: EMPHYSEMA
     Dosage: 400 MCG, ONE PUFF TWICE DAILY
     Route: 055
     Dates: start: 20151020
  27. BUDESONIDE. [Suspect]
     Active Substance: BUDESONIDE
     Indication: EMPHYSEMA
     Dosage: TWO TIMES A DAY
     Route: 055
  28. SYNTHROID [Concomitant]
     Active Substance: LEVOTHYROXINE SODIUM
     Indication: THYROID DISORDER
     Dosage: TAKES 50 MCG ONE DAY AND 75 MCG THE NEXT
  29. ZIOPTAN [Concomitant]
     Active Substance: TAFLUPROST
     Indication: GLAUCOMA
     Dosage: AT NIGHT
  30. PHAZYME [Concomitant]
     Active Substance: DIMETHICONE 410
     Dosage: 180 MG
  31. LINZESS [Suspect]
     Active Substance: LINACLOTIDE
     Dosage: UNK
     Route: 065
  32. PROLIA [Concomitant]
     Active Substance: DENOSUMAB
     Indication: OSTEOARTHRITIS
     Dosage: UNK
  33. REFRESH PLUS [Concomitant]
     Active Substance: CARBOXYMETHYLCELLULOSE SODIUM
     Indication: EYE LUBRICATION THERAPY
     Dosage: FOUR TIMES A DAY
  34. GLUCERNA [Concomitant]
     Active Substance: AMINO ACIDS\DEXTROSE\ELECTROLYTES NOS\SOYBEAN OIL\VITAMINS
     Indication: DIABETES MELLITUS
     Dosage: THREE TIMES A DAY
  35. CALCIUM [Concomitant]
     Active Substance: CALCIUM
     Indication: OSTEOPOROSIS
     Dosage: 500 MG
  36. MULTIPLE SKIN CREAMS [Concomitant]
     Indication: VULVOVAGINAL DISORDER
     Dosage: UNK
     Route: 067
  37. OMEPRAZOLE. [Suspect]
     Active Substance: OMEPRAZOLE
     Indication: HIATUS HERNIA
     Dosage: 80 MG
     Route: 048
  38. COLACE [Concomitant]
     Active Substance: DOCUSATE SODIUM
     Dosage: UNK
  39. CENTRUM [Concomitant]
     Active Substance: VITAMINS
     Indication: HYPOVITAMINOSIS
     Dosage: DAILY
  40. FERROUS IRON [Concomitant]
     Indication: ANAEMIA
     Dosage: UNK
  41. BOTOX [Concomitant]
     Active Substance: ONABOTULINUMTOXINA
     Dosage: UNK

REACTIONS (44)
  - Spinal fracture [Unknown]
  - Throat lesion [Unknown]
  - Malaise [Unknown]
  - Anxiety [Unknown]
  - Back pain [Not Recovered/Not Resolved]
  - Tongue injury [Unknown]
  - Injury associated with device [Unknown]
  - Spinal cord injury cervical [Unknown]
  - Seizure [Unknown]
  - Urinary bladder rupture [Unknown]
  - Malnutrition [Unknown]
  - Asthenia [Unknown]
  - Insomnia [Unknown]
  - Arthropathy [Unknown]
  - Intentional product misuse [Unknown]
  - Device issue [Unknown]
  - Accident at home [Unknown]
  - Dyspnoea [Unknown]
  - Device difficult to use [Unknown]
  - Hernia [Not Recovered/Not Resolved]
  - Fungal infection [Unknown]
  - Vomiting [Unknown]
  - Product use issue [Unknown]
  - Off label use [Unknown]
  - Product taste abnormal [Unknown]
  - Body height decreased [Not Recovered/Not Resolved]
  - Emphysema [Unknown]
  - Peripheral venous disease [Unknown]
  - Malaise [Unknown]
  - Dry mouth [Unknown]
  - Syncope [Unknown]
  - Drug ineffective [Unknown]
  - Lung disorder [Unknown]
  - Ovarian cancer [Unknown]
  - Pain [Unknown]
  - Adverse event [Unknown]
  - Osteoporosis [Unknown]
  - Neuralgia [Unknown]
  - Cardiac disorder [Unknown]
  - Feeding disorder [Unknown]
  - Constipation [Unknown]
  - Agitation [Unknown]
  - Neck pain [Unknown]
  - Circumstance or information capable of leading to medication error [Unknown]

NARRATIVE: CASE EVENT DATE: 1998
